FAERS Safety Report 8324873-5 (Version None)
Quarter: 2012Q2

REPORT INFORMATION
  Report Type: 
  Country: None (occurrence: None)
  Receive Date: 20120501
  Receipt Date: 20120417
  Transmission Date: 20120825
  Serious: No
  Sender: FDA-Public Use
  Company Number: US-PFIZER INC-2012098300

PATIENT
  Sex: Female
  Weight: 87.1 kg

DRUGS (2)
  1. LIPITOR [Suspect]
     Indication: HYPERCHOLESTEROLAEMIA
     Dosage: UNK
     Route: 048
  2. XALATAN [Concomitant]
     Indication: GLAUCOMA
     Dosage: 1 GTT, (QHS)
     Route: 047

REACTIONS (7)
  - DYSPNOEA [None]
  - PARAESTHESIA [None]
  - DISTURBANCE IN ATTENTION [None]
  - DYSGEUSIA [None]
  - HEADACHE [None]
  - ANOSMIA [None]
  - ACTIVITIES OF DAILY LIVING IMPAIRED [None]
